FAERS Safety Report 18328538 (Version 1)
Quarter: 2020Q3

REPORT INFORMATION
  Report Type: Spontaneous
  Country: US (occurrence: US)
  Receive Date: 20200930
  Receipt Date: 20200930
  Transmission Date: 20201103
  Serious: No
  Sender: FDA-Public Use
  Company Number: US-ASTRAZENECA-2020SF23108

PATIENT
  Age: 25454 Day
  Sex: Female
  Weight: 91.6 kg

DRUGS (2)
  1. FASENRA [Suspect]
     Active Substance: BENRALIZUMAB
     Indication: ASTHMA
     Dosage: 30 MG EVERY FOUR WEEKS AND GOING FORWARD WILL TAKE FASENRA EVERY 8 WEEKS.
     Route: 058
     Dates: start: 202006
  2. FASENRA [Suspect]
     Active Substance: BENRALIZUMAB
     Indication: ASTHMA
     Dosage: 30 MG SECOND DOSE ABOUT 6 WEEKS AFTER HER FIRST DOSE
     Route: 058

REACTIONS (3)
  - Insurance issue [Unknown]
  - White blood cell count decreased [Unknown]
  - Inappropriate schedule of product administration [Unknown]

NARRATIVE: CASE EVENT DATE: 20200914
